FAERS Safety Report 6662925-6 (Version None)
Quarter: 2010Q2

REPORT INFORMATION
  Report Type: 
  Country: None (occurrence: None)
  Receive Date: 20100401
  Receipt Date: 20100323
  Transmission Date: 20101027
  Serious: Yes (Hospitalization)
  Sender: FDA-Public Use
  Company Number: FR-JNJFOC-20100306590

PATIENT
  Age: 87 Year
  Sex: Male

DRUGS (6)
  1. TAVANIC [Suspect]
     Indication: LUNG INFECTION
     Route: 048
  2. GLUCOPHAGE [Concomitant]
     Route: 065
  3. KARDEGIC [Concomitant]
     Route: 065
  4. OMEPRAZOLE [Concomitant]
     Route: 065
  5. ALFUZOSIN HCL [Concomitant]
     Route: 065
  6. ECONAZOLE NITRATE [Concomitant]
     Route: 065

REACTIONS (4)
  - COUGH [None]
  - DEHYDRATION [None]
  - DIARRHOEA [None]
  - GENERAL PHYSICAL CONDITION ABNORMAL [None]
